FAERS Safety Report 18191329 (Version 2)
Quarter: 2020Q3

REPORT INFORMATION
  Report Type: Spontaneous
  Country: JP (occurrence: JP)
  Receive Date: 20200825
  Receipt Date: 20200901
  Transmission Date: 20201103
  Serious: Yes (Other)
  Sender: FDA-Public Use
  Company Number: JP-MACLEODS PHARMACEUTICALS US LTD-MAC2020027767

PATIENT

DRUGS (4)
  1. TRIAMCINOLONE ACETONIDE. [Suspect]
     Active Substance: TRIAMCINOLONE ACETONIDE
     Indication: MACULAR OEDEMA
     Dosage: 20 MILLIGRAM, INJECTION INTO THE POSTERIOR SUBTENON SPACE, TWICE, SUBTENON INJECTION
     Route: 047
  2. LEVOFLOXACIN. [Concomitant]
     Active Substance: LEVOFLOXACIN
     Indication: PRODUCT USED FOR UNKNOWN INDICATION
     Dosage: UNK UNK, QID, EVERY 6 HOURS, OPHTHALMIC SOLUTION
     Route: 061
  3. LIDOCAINE. [Concomitant]
     Active Substance: LIDOCAINE
     Indication: ANAESTHESIA EYE
     Dosage: UNK
     Route: 061
  4. TRIAMCINOLONE ACETONIDE. [Suspect]
     Active Substance: TRIAMCINOLONE ACETONIDE
     Dosage: UNK, INJECTION, SUBTENON INJECTION (SECOND INJECTION)
     Route: 047

REACTIONS (3)
  - Orbital infection [Recovered/Resolved]
  - Eye infection fungal [Recovered/Resolved]
  - Eye abscess [Recovered/Resolved]
